FAERS Safety Report 8302962-9 (Version None)
Quarter: 2012Q2

REPORT INFORMATION
  Report Type: 
  Country: None (occurrence: None)
  Receive Date: 20120420
  Receipt Date: 20120417
  Transmission Date: 20120825
  Serious: Yes (Other)
  Sender: FDA-Public Use
  Company Number: US-PFIZER INC-2012095775

PATIENT
  Sex: Female
  Weight: 86.168 kg

DRUGS (2)
  1. LYRICA [Suspect]
     Indication: FIBROMYALGIA
  2. LYRICA [Suspect]
     Indication: NERVE INJURY
     Dosage: 800 MG, DAILY
     Route: 048
     Dates: start: 20110101, end: 20120410

REACTIONS (3)
  - BALANCE DISORDER [None]
  - WITHDRAWAL SYNDROME [None]
  - PAIN [None]
